FAERS Safety Report 10328193 (Version 2)
Quarter: 2014Q3

REPORT INFORMATION
  Report Type: Spontaneous
  Country: US (occurrence: US)
  Receive Date: 20140721
  Receipt Date: 20140721
  Transmission Date: 20150326
  Serious: Yes (Life-Threatening, Other)
  Sender: FDA-Public Use
  Company Number: PHEH2013US001034

PATIENT
  Age: 59 Year
  Sex: Male

DRUGS (1)
  1. DIOVAN [Suspect]
     Active Substance: VALSARTAN
     Dosage: UNK UKN, UNK

REACTIONS (9)
  - Pain [Unknown]
  - Hypertension [Unknown]
  - Irritability [Unknown]
  - Insomnia [Unknown]
  - Blood pressure inadequately controlled [Unknown]
  - Coeliac disease [Unknown]
  - Thyroid disorder [Unknown]
  - Feeling abnormal [Unknown]
  - General physical health deterioration [Unknown]
